FAERS Safety Report 17267850 (Version 1)
Quarter: 2020Q1

REPORT INFORMATION
  Report Type: Spontaneous
  Country: US (occurrence: US)
  Receive Date: 20191220
  Receipt Date: 20191220
  Transmission Date: 20200409
  Serious: Yes (Hospitalization)
  Sender: FDA-Public Use
  Company Number: None

PATIENT
  Age: 53 Year
  Sex: Female
  Weight: 73.8 kg

DRUGS (1)
  1. ASPIRIN. [Suspect]
     Active Substance: ASPIRIN
     Dates: end: 20191120

REACTIONS (4)
  - Neck pain [None]
  - Muscular weakness [None]
  - Fall [None]
  - Joint dislocation [None]

NARRATIVE: CASE EVENT DATE: 20191120
